FAERS Safety Report 17670807 (Version 5)
Quarter: 2021Q1

REPORT INFORMATION
  Report Type: Spontaneous
  Country: JP (occurrence: JP)
  Receive Date: 20200415
  Receipt Date: 20210204
  Transmission Date: 20210419
  Serious: Yes (Hospitalization)
  Sender: FDA-Public Use
  Company Number: JP-CELGENEUS-JPN-20200402505

PATIENT
  Age: 82 Year
  Sex: Male
  Weight: 47.4 kg

DRUGS (27)
  1. VENETOCLAX (VERUM) [Concomitant]
     Dosage: 100 MILLIGRAM
     Route: 048
     Dates: start: 20200121, end: 20200121
  2. TAKECAB [Concomitant]
     Active Substance: VONOPRAZAN FUMARATE
     Indication: CHRONIC GASTRITIS
     Dosage: 20 MILLIGRAM
     Route: 048
     Dates: start: 20191218
  3. VIDAZA [Suspect]
     Active Substance: AZACITIDINE
     Dosage: 37.5 MILLIGRAM/SQ. METER
     Route: 058
     Dates: start: 20190930, end: 20200112
  4. VIDAZA [Suspect]
     Active Substance: AZACITIDINE
     Dosage: 24.75 MILLIGRAM/SQ. METER
     Route: 058
     Dates: start: 20200304
  5. VENETOCLAX (VERUM) [Concomitant]
     Dosage: 400 MILLIGRAM
     Route: 048
     Dates: start: 20190107, end: 20190121
  6. LOCOID [Concomitant]
     Active Substance: HYDROCORTISONE BUTYRATE
     Indication: DRY SKIN
     Dosage: .2 PERCENT
     Route: 061
     Dates: start: 20190104
  7. LEVOFLOXACIN. [Concomitant]
     Active Substance: LEVOFLOXACIN
     Indication: BACTERIAL INFECTION
  8. VENETOCLAX (VERUM) [Concomitant]
     Indication: ACUTE MYELOID LEUKAEMIA
     Dosage: 100 MILLIGRAM
     Route: 048
     Dates: start: 20181126, end: 20181126
  9. RINDERON VG [Concomitant]
     Active Substance: BETAMETHASONE VALERATE\GENTAMICIN SULFATE
     Indication: DRY SKIN
     Route: 062
     Dates: start: 20190930
  10. XYLOCAINE [Concomitant]
     Active Substance: LIDOCAINE HYDROCHLORIDE
     Indication: STOMATITIS
     Route: 062
     Dates: start: 20190125
  11. VIDAZA [Suspect]
     Active Substance: AZACITIDINE
     Indication: ACUTE MYELOID LEUKAEMIA
     Dosage: 75 MILLIGRAM/SQ. METER
     Route: 058
     Dates: start: 20181126, end: 20190815
  12. VENETOCLAX (VERUM) [Concomitant]
     Dosage: 200 MILLIGRAM
     Route: 048
     Dates: start: 20190212, end: 20200120
  13. CLOSTRIDIUM BUTYRICUM [Concomitant]
     Active Substance: CLOSTRIDIUM BUTYRICUM SPORES STRAIN M-55
     Indication: INFECTION PROPHYLAXIS
     Dosage: 3 TABLET
     Route: 048
     Dates: start: 20181113
  14. RESTAMIN KOWA [Concomitant]
     Indication: DRUG ERUPTION
     Route: 061
     Dates: start: 20190104
  15. VENETOCLAX (VERUM) [Concomitant]
     Dosage: 400 MILLIGRAM
     Route: 048
     Dates: start: 20181128, end: 20181221
  16. VENETOCLAX (VERUM) [Concomitant]
     Dosage: 200 MILLIGRAM
     Route: 048
     Dates: start: 20181222, end: 20190106
  17. FLUCONAZOLE. [Concomitant]
     Active Substance: FLUCONAZOLE
     Indication: INFECTION PROPHYLAXIS
     Dosage: 100 MILLIGRAM
     Route: 048
     Dates: start: 20190111
  18. SODIUM PICOSULFATE [Concomitant]
     Active Substance: SODIUM PICOSULFATE
     Indication: CONSTIPATION
     Dosage: 10 DROPS
     Route: 048
     Dates: start: 20190701
  19. VENETOCLAX (VERUM) [Concomitant]
     Dosage: 200 MILLIGRAM
     Route: 048
     Dates: start: 20181127, end: 20181127
  20. VENETOCLAX (VERUM) [Concomitant]
     Dosage: 200 MILLIGRAM
     Route: 048
     Dates: start: 20200122
  21. MUCOPOLYSACCHARIDE POLYSULFURIC ACID ESTER [Concomitant]
     Indication: DRY SKIN
     Route: 061
     Dates: start: 20181114
  22. CALONAL [Concomitant]
     Active Substance: ACETAMINOPHEN
     Indication: BACK PAIN
     Dosage: 500 MILLIGRAM
     Route: 048
     Dates: start: 20190104
  23. LEVOFLOXACIN. [Concomitant]
     Active Substance: LEVOFLOXACIN
     Indication: INFECTION PROPHYLAXIS
     Dosage: 500 MILLIGRAM
     Route: 048
     Dates: start: 20191219
  24. KETOPROFEN. [Concomitant]
     Active Substance: KETOPROFEN
     Indication: SCIATICA
     Dosage: 120 MILLIGRAM
     Route: 062
     Dates: start: 20190515
  25. YD SOLITA?T NO1 [Concomitant]
     Indication: PROPHYLAXIS
     Route: 041
  26. MAGNESIUM OXIDE. [Concomitant]
     Active Substance: MAGNESIUM OXIDE
     Indication: CONSTIPATION
     Dosage: 990 MILLIGRAM
     Route: 048
     Dates: start: 20181113
  27. MUCOPOLYSACCHARIDE POLYSULFURIC ACID ESTER [Concomitant]
     Route: 062
     Dates: start: 20190908

REACTIONS (1)
  - Abdominal pain upper [Recovered/Resolved]

NARRATIVE: CASE EVENT DATE: 20200329
